FAERS Safety Report 6473777-1 (Version None)
Quarter: 2009Q4

REPORT INFORMATION
  Report Type: 
  Country: None (occurrence: None)
  Receive Date: 20091204
  Receipt Date: 20091125
  Transmission Date: 20100525
  Serious: Yes (Other)
  Sender: FDA-Public Use
  Company Number: GB-PFIZER INC-2009303330

PATIENT
  Age: 82 Year
  Sex: Male

DRUGS (2)
  1. SOMATROPIN [Suspect]
     Indication: GROWTH HORMONE DEFICIENCY
     Dosage: 0.3 MG, 1X/DAY
     Dates: start: 20020114, end: 20051029
  2. TESTOSTERONE [Concomitant]
     Dosage: 5 MG, 1X/DAY
     Dates: start: 20031008, end: 20050311

REACTIONS (1)
  - PROSTATE CANCER [None]
